FAERS Safety Report 8459186-4 (Version None)
Quarter: 2012Q2

REPORT INFORMATION
  Report Type: 
  Country: None (occurrence: None)
  Receive Date: 20120622
  Receipt Date: 20120614
  Transmission Date: 20120825
  Serious: Yes (Other)
  Sender: FDA-Public Use
  Company Number: DE-ROCHE-1080071

PATIENT
  Age: 83 Year
  Sex: Male

DRUGS (5)
  1. LUCENTIS [Suspect]
     Route: 050
     Dates: start: 20120101
  2. LUCENTIS [Suspect]
     Route: 050
     Dates: start: 20120401
  3. FALITHROM [Concomitant]
     Route: 065
     Dates: start: 20110301
  4. LUCENTIS [Suspect]
     Indication: AGE-RELATED MACULAR DEGENERATION
     Route: 050
     Dates: start: 20110301
  5. LUCENTIS [Suspect]
     Route: 050
     Dates: start: 20120201

REACTIONS (3)
  - VITREOUS HAEMORRHAGE [None]
  - VISUAL ACUITY REDUCED [None]
  - SCOTOMA [None]
